FAERS Safety Report 6291773-4 (Version None)
Quarter: 2009Q3

REPORT INFORMATION
  Report Type: 
  Country: None (occurrence: None)
  Receive Date: 20090729
  Receipt Date: 20090721
  Transmission Date: 20100115
  Serious: Yes (Hospitalization)
  Sender: FDA-Public Use
  Company Number: CHPA2009US15820

PATIENT
  Age: 69 Year
  Sex: Female
  Weight: 52.6 kg

DRUGS (1)
  1. EXCEDRIN (MIGRAINE) [Suspect]
     Indication: HEADACHE
     Dosage: 1 DF, OD, ORAL
     Route: 048
     Dates: start: 20090701, end: 20090701

REACTIONS (2)
  - BLOOD SODIUM DECREASED [None]
  - CARDIAC DISORDER [None]
